FAERS Safety Report 7507956-9 (Version None)
Quarter: 2011Q2

REPORT INFORMATION
  Report Type: 
  Country: None (occurrence: None)
  Receive Date: 20110519
  Receipt Date: 20110511
  Transmission Date: 20111010
  Serious: Yes (Life-Threatening, Hospitalization)
  Sender: FDA-Public Use
  Company Number: TPA2011A01206

PATIENT
  Age: 75 Year
  Sex: Female

DRUGS (2)
  1. LISINOPRIL [Concomitant]
  2. ULORIC [Suspect]
     Indication: GOUT
     Dosage: 40 MG, 1 IN 1 D, PER ORAL
     Route: 048
     Dates: start: 20100923, end: 20101219

REACTIONS (7)
  - RENAL FAILURE [None]
  - DEHYDRATION [None]
  - APPARENT DEATH [None]
  - THROMBOCYTOPENIA [None]
  - HEPATIC FAILURE [None]
  - RASH [None]
  - GASTROINTESTINAL HAEMORRHAGE [None]
